FAERS Safety Report 24734886 (Version 1)
Quarter: 2024Q4

REPORT INFORMATION
  Report Type: Spontaneous
  Country: IT (occurrence: IT)
  Receive Date: 20241215
  Receipt Date: 20241215
  Transmission Date: 20250115
  Serious: Yes (Other)
  Sender: AUROBINDO
  Company Number: IT-AUROBINDO-AUR-APL-2024-059794

PATIENT
  Age: 49 Year
  Sex: Male

DRUGS (10)
  1. OXALIPLATIN [Suspect]
     Active Substance: OXALIPLATIN
     Indication: Acinar cell carcinoma of pancreas
     Dosage: UNK
     Route: 065
  2. GEMCITABINE [Suspect]
     Active Substance: GEMCITABINE
     Indication: Acinar cell carcinoma of pancreas
     Dosage: EIGHT CYCLES
     Route: 065
  3. GEMCITABINE [Suspect]
     Active Substance: GEMCITABINE
     Dosage: ANOTHER EIGHT CYCLES
     Route: 065
     Dates: start: 201107
  4. IRINOTECAN [Suspect]
     Active Substance: IRINOTECAN
     Indication: Acinar cell carcinoma of pancreas
     Dosage: 200 MG/M2  ON DAY 1
     Route: 065
     Dates: start: 201211
  5. IRINOTECAN [Suspect]
     Active Substance: IRINOTECAN
     Dosage: TWENTY CYCLES
     Route: 065
     Dates: start: 201211
  6. CAPECITABINE [Suspect]
     Active Substance: CAPECITABINE
     Indication: Acinar cell carcinoma of pancreas
     Dosage: EIGHT CYCLES
     Route: 065
  7. CAPECITABINE [Suspect]
     Active Substance: CAPECITABINE
     Dosage: ANOTHER EIGHT CYCLES
     Route: 065
     Dates: start: 201107
  8. CAPECITABINE [Suspect]
     Active Substance: CAPECITABINE
     Dosage: 2000 MG/M2  ON DAYS 1 TO 15 EVERY 21 D
     Route: 065
     Dates: start: 201211
  9. CAPECITABINE [Suspect]
     Active Substance: CAPECITABINE
     Dosage: TWENTY CYCLES
     Route: 065
  10. CAPECITABINE [Suspect]
     Active Substance: CAPECITABINE
     Dosage: METRONOMIC
     Route: 065
     Dates: end: 201507

REACTIONS (5)
  - Anaemia [Unknown]
  - Thrombocytopenia [Unknown]
  - Neuropathy peripheral [Unknown]
  - Disease progression [Unknown]
  - Therapy partial responder [Unknown]
